FAERS Safety Report 25205422 (Version 1)
Quarter: 2025Q2

REPORT INFORMATION
  Report Type: Spontaneous
  Country: CN (occurrence: CN)
  Receive Date: 20250417
  Receipt Date: 20250417
  Transmission Date: 20250716
  Serious: Yes (Hospitalization, Other)
  Sender: BAXTER
  Company Number: None

PATIENT
  Age: 45 Year
  Sex: Male
  Weight: 70 kg

DRUGS (6)
  1. CYCLOPHOSPHAMIDE [Suspect]
     Active Substance: CYCLOPHOSPHAMIDE
     Indication: Diffuse large B-cell lymphoma
     Dosage: 1.2 G, QD, IVD, D1, (WITH NS 100ML)
     Route: 041
     Dates: start: 20250320, end: 20250320
  2. SODIUM CHLORIDE [Suspect]
     Active Substance: SODIUM CHLORIDE
     Dosage: 500 ML, QD, D0 (0.9% NS 500ML) WITH RITUXIMAB 600 MG IVD
     Route: 041
     Dates: start: 20250319, end: 20250319
  3. SODIUM CHLORIDE [Suspect]
     Active Substance: SODIUM CHLORIDE
     Dosage: 100 ML, QD, D1 (NS 100ML) WITH CYCLOPHOSPHAMIDE 1.2 G IVD
     Route: 041
     Dates: start: 20250320, end: 20250320
  4. SODIUM CHLORIDE [Suspect]
     Active Substance: SODIUM CHLORIDE
     Dosage: 20 ML, QD, D1 (0.9% NS 20ML) WITH VINDESINE 4 MG IVD
     Route: 041
     Dates: start: 20250320, end: 20250320
  5. RITUXIMAB [Suspect]
     Active Substance: RITUXIMAB
     Indication: Diffuse large B-cell lymphoma
     Dosage: 600.0000 MG, QD, IVD, D0 (WITH 0.9% NS 500ML)
     Route: 041
     Dates: start: 20250319, end: 20250319
  6. VINDESINE SULFATE [Suspect]
     Active Substance: VINDESINE SULFATE
     Indication: Diffuse large B-cell lymphoma
     Dosage: 4 MG, QD (ONCE DAILY), IVD, D1 (WITH 0.9% NS 20ML)
     Route: 041
     Dates: start: 20250320, end: 20250320

REACTIONS (2)
  - White blood cell count decreased [Recovering/Resolving]
  - Myelosuppression [Unknown]

NARRATIVE: CASE EVENT DATE: 20250402
